FAERS Safety Report 11596804 (Version 1)
Quarter: 2015Q4

REPORT INFORMATION
  Report Type: Spontaneous
  Country: US (occurrence: None)
  Receive Date: 20151005
  Receipt Date: 20151005
  Transmission Date: 20160304
  Serious: Yes (Other)
  Sender: FDA-Public Use
  Company Number: None

PATIENT
  Age: 18 Year
  Sex: Male
  Weight: 58.97 kg

DRUGS (3)
  1. ZOLOFT [Suspect]
     Active Substance: SERTRALINE HYDROCHLORIDE
     Indication: BIPOLAR DISORDER
     Dosage: 1 PILL
     Route: 048
     Dates: start: 20150922, end: 20150926
  2. LATUDA [Suspect]
     Active Substance: LURASIDONE HYDROCHLORIDE
     Dosage: 1 PILL NIGHT
  3. ZOLOFT [Suspect]
     Active Substance: SERTRALINE HYDROCHLORIDE
     Indication: DEPRESSION
     Dosage: 1 PILL
     Route: 048
     Dates: start: 20150922, end: 20150926

REACTIONS (9)
  - Headache [None]
  - Muscle tightness [None]
  - Confusional state [None]
  - Tremor [None]
  - Pain [None]
  - Balance disorder [None]
  - Loss of consciousness [None]
  - Drug hypersensitivity [None]
  - Chest pain [None]

NARRATIVE: CASE EVENT DATE: 20150925
